FAERS Safety Report 22913351 (Version 2)
Quarter: 2024Q1

REPORT INFORMATION
  Report Type: Spontaneous
  Country: US (occurrence: None)
  Receive Date: 20230906
  Receipt Date: 20240127
  Transmission Date: 20240410
  Serious: Yes (Other)
  Sender: FDA-Public Use
  Company Number: US-ROCHE-3394307

PATIENT
  Age: 65 Year
  Sex: Female

DRUGS (6)
  1. COTELLIC [Suspect]
     Active Substance: COBIMETINIB
     Indication: Pancreatic carcinoma
     Dosage: 3 TABLETS DAILY BY MOUTH DAILY FOR 21 DAYS, FOLLOWED BY 7 DAYS OFF FOR ONE YEAR.
     Route: 048
  2. PANTOPRAZOLE [Concomitant]
     Active Substance: PANTOPRAZOLE
  3. LYRICA [Concomitant]
     Active Substance: PREGABALIN
  4. FUROSEMIDE [Concomitant]
     Active Substance: FUROSEMIDE
  5. OXYCODONE [Concomitant]
     Active Substance: OXYCODONE\OXYCODONE HYDROCHLORIDE
  6. GLIMEPIRIDE [Concomitant]
     Active Substance: GLIMEPIRIDE

REACTIONS (8)
  - Off label use [Unknown]
  - Systemic lupus erythematosus [Unknown]
  - Hyperlipidaemia [Unknown]
  - Hepatic steatosis [Unknown]
  - Anxiety [Unknown]
  - Septic shock [Unknown]
  - Sepsis [Unknown]
  - Feeling abnormal [Unknown]
